FAERS Safety Report 5061301-X (Version None)
Quarter: 2006Q3

REPORT INFORMATION
  Report Type: 
  Country: None (occurrence: None)
  Receive Date: 20060719
  Receipt Date: 20060719
  Transmission Date: 20061208
  Serious: Yes (Hospitalization)
  Sender: FDA-Public Use
  Company Number: None

PATIENT
  Age: 72 Year
  Sex: Male

DRUGS (11)
  1. FUROSEMIDE [Suspect]
     Indication: FLUID RETENTION
     Dosage: 40MG QD
     Dates: start: 19950701
  2. FUROSEMIDE [Suspect]
     Indication: HYPERTENSION
     Dosage: 40MG QD
     Dates: start: 19950701
  3. HUMULIN 70/30 [Concomitant]
  4. ZOCOR [Concomitant]
  5. BACLOFEN [Concomitant]
  6. MECLIZINE [Concomitant]
  7. HYOSCYAMINE [Concomitant]
  8. LORATADINE [Concomitant]
  9. TAMSULOSIN HCL [Concomitant]
  10. ALENDRONATE SODIUM [Concomitant]
  11. OMEPRAZOLE [Concomitant]

REACTIONS (1)
  - UNEVALUABLE EVENT [None]
